FAERS Safety Report 9976523 (Version 1)
Quarter: 2014Q1

REPORT INFORMATION
  Report Type: Report from Study
  Country: US (occurrence: US)
  Receive Date: 20140306
  Receipt Date: 20140306
  Transmission Date: 20141002
  Serious: No
  Sender: FDA-Public Use
  Company Number: US-ABBVIE-13P-163-1166433-00

PATIENT
  Age: 78 Year
  Sex: Female

DRUGS (9)
  1. HUMIRA [Suspect]
     Indication: CROHN^S DISEASE
     Dates: start: 20130806, end: 20131015
  2. HUMIRA [Suspect]
     Dates: start: 20131029
  3. FENOFIBRATE [Concomitant]
     Indication: BLOOD TRIGLYCERIDES INCREASED
  4. XARELTO [Concomitant]
     Indication: ANTICOAGULANT THERAPY
  5. BETAPACE [Concomitant]
     Indication: HEART RATE IRREGULAR
  6. LEVOTHYROXINE [Concomitant]
     Indication: THYROID DISORDER
  7. DIAZEPAM [Concomitant]
     Indication: INNER EAR DISORDER
     Dosage: AT BEDTIME
  8. PENTASA [Concomitant]
     Indication: CROHN^S DISEASE
     Dosage: AT MEALS
     Dates: end: 201310
  9. DOMPERIDONE [Concomitant]
     Indication: IMPAIRED GASTRIC EMPTYING
     Dosage: 2 TABS BEFORE MEALS

REACTIONS (6)
  - Abdominal distension [Recovering/Resolving]
  - Weight increased [Recovering/Resolving]
  - Tinea infection [Recovering/Resolving]
  - Injection site erythema [Not Recovered/Not Resolved]
  - Injection site mass [Not Recovered/Not Resolved]
  - Injection site bruising [Not Recovered/Not Resolved]
